FAERS Safety Report 11403700 (Version 1)
Quarter: 2015Q3

REPORT INFORMATION
  Report Type: Spontaneous
  Country: US (occurrence: None)
  Receive Date: 20150807
  Receipt Date: 20150807
  Transmission Date: 20151125
  Serious: No
  Sender: FDA-Public Use
  Company Number: 2015FE01896

PATIENT
  Age: 52 Year
  Sex: Female
  Weight: 57.6 kg

DRUGS (1)
  1. PREPOPIK [Suspect]
     Active Substance: ANHYDROUS CITRIC ACID\MAGNESIUM OXIDE\SODIUM PICOSULFATE
     Indication: BOWEL PREPARATION
     Dosage: SPLIT-DOSE REGIMEN
     Route: 048
     Dates: start: 20150601

REACTIONS (6)
  - Dry mouth [None]
  - Abdominal pain upper [None]
  - Thirst [None]
  - Diarrhoea [None]
  - Rhinorrhoea [None]
  - Nausea [None]

NARRATIVE: CASE EVENT DATE: 20150601
